FAERS Safety Report 19783253 (Version 1)
Quarter: 2021Q3

REPORT INFORMATION
  Report Type: Spontaneous
  Country: US (occurrence: US)
  Receive Date: 20210902
  Receipt Date: 20210902
  Transmission Date: 20211014
  Serious: No
  Sender: FDA-Public Use
  Company Number: US-ELI_LILLY_AND_COMPANY-US202108001509

PATIENT
  Age: 56 Year
  Sex: Male

DRUGS (1)
  1. TALTZ [Suspect]
     Active Substance: IXEKIZUMAB
     Indication: PRODUCT USED FOR UNKNOWN INDICATION
     Dosage: 80 MG, OTHER(EVERY FOUR WEEKS)
     Route: 065
     Dates: start: 20210508

REACTIONS (4)
  - Swelling of eyelid [Recovering/Resolving]
  - Injection site rash [Recovered/Resolved]
  - Peripheral swelling [Recovering/Resolving]
  - Infection [Unknown]

NARRATIVE: CASE EVENT DATE: 20210707
